FAERS Safety Report 10613972 (Version 2)
Quarter: 2014Q4

REPORT INFORMATION
  Report Type: Spontaneous
  Country: AT (occurrence: AT)
  Receive Date: 20141128
  Receipt Date: 20141204
  Transmission Date: 20150529
  Serious: Yes (Other)
  Sender: FDA-Public Use
  Company Number: AT-BRISTOL-MYERS SQUIBB COMPANY-21628490

PATIENT
  Age: 30 Year
  Sex: Male

DRUGS (1)
  1. NULOJIX [Suspect]
     Active Substance: BELATACEPT
     Indication: IGA NEPHROPATHY
     Dosage: FROM 23MAY
     Route: 042
     Dates: start: 20140523, end: 20140813

REACTIONS (3)
  - White blood cells urine positive [Recovering/Resolving]
  - Renal tubular disorder [Recovering/Resolving]
  - C-reactive protein increased [Recovered/Resolved]

NARRATIVE: CASE EVENT DATE: 201408
